FAERS Safety Report 5253493-4 (Version None)
Quarter: 2007Q1

REPORT INFORMATION
  Report Type: 
  Country: None (occurrence: None)
  Receive Date: 20070301
  Receipt Date: 20070216
  Transmission Date: 20070707
  Serious: Yes (Hospitalization, Other)
  Sender: FDA-Public Use
  Company Number: US-SHR-US-2006-008188

PATIENT
  Age: 59 Year
  Sex: Female
  Weight: 74 kg

DRUGS (3)
  1. BETASERON [Suspect]
     Indication: RELAPSING-REMITTING MULTIPLE SCLEROSIS
     Dosage: 8 MIU, EVERY 2D
     Route: 058
     Dates: start: 19990308
  2. KYTRIL [Concomitant]
     Dosage: 2 TAB(S), 1X/DAY
     Route: 048
     Dates: start: 20061012
  3. COLACE [Concomitant]
     Dosage: 4 TAB(S), 1X/DAY
     Route: 048
     Dates: start: 20061012

REACTIONS (5)
  - ENDOMETRIOSIS [None]
  - INJECTION SITE ERYTHEMA [None]
  - MALIGNANT MELANOMA [None]
  - OVARIAN CANCER METASTATIC [None]
  - RENAL CELL CARCINOMA STAGE UNSPECIFIED [None]
